FAERS Safety Report 13288307 (Version 1)
Quarter: 2017Q1

REPORT INFORMATION
  Report Type: Spontaneous
  Country: BR (occurrence: BR)
  Receive Date: 20170302
  Receipt Date: 20170302
  Transmission Date: 20170428
  Serious: Yes (Other)
  Sender: FDA-Public Use
  Company Number: BR-ELI_LILLY_AND_COMPANY-BR201702008357

PATIENT
  Age: 69 Year
  Sex: Female

DRUGS (4)
  1. HUMULIN N [Suspect]
     Active Substance: INSULIN HUMAN
     Indication: DIABETES MELLITUS
     Dosage: 26 IU, EACH MORNING
     Route: 065
     Dates: start: 2007
  2. HUMULIN N [Suspect]
     Active Substance: INSULIN HUMAN
     Dosage: 18 IU, OTHER
     Route: 065
     Dates: start: 2007
  3. HUMULIN R [Suspect]
     Active Substance: INSULIN HUMAN
     Indication: DIABETES MELLITUS
     Dosage: 4 IU, EACH MORNING
     Route: 065
     Dates: start: 2007
  4. HUMULIN N [Suspect]
     Active Substance: INSULIN HUMAN
     Dosage: 14 IU, EACH EVENING
     Route: 065
     Dates: start: 2007

REACTIONS (5)
  - Drug dose omission [Unknown]
  - Retinal oedema [Recovering/Resolving]
  - Visual impairment [Unknown]
  - Cataract [Unknown]
  - Blood glucose increased [Unknown]

NARRATIVE: CASE EVENT DATE: 20170219
